FAERS Safety Report 19362964 (Version 1)
Quarter: 2021Q2

REPORT INFORMATION
  Report Type: Spontaneous
  Country: US (occurrence: US)
  Receive Date: 20210602
  Receipt Date: 20210602
  Transmission Date: 20210717
  Serious: No
  Sender: FDA-Public Use
  Company Number: US-BAYER-2021-149679

PATIENT
  Age: 51 Year
  Sex: Female

DRUGS (3)
  1. MIRENA [Suspect]
     Active Substance: LEVONORGESTREL
     Indication: CONTRACEPTION
  2. XELJANZ [Concomitant]
     Active Substance: TOFACITINIB CITRATE
  3. MIRENA [Suspect]
     Active Substance: LEVONORGESTREL
     Indication: RHEUMATOID ARTHRITIS
     Dosage: 20 ?G PER DAY CONTINUOUSLY
     Route: 015
     Dates: start: 20200625

REACTIONS (2)
  - Joint swelling [None]
  - Arthralgia [None]

NARRATIVE: CASE EVENT DATE: 202104
